FAERS Safety Report 6233638-X (Version None)
Quarter: 2009Q2

REPORT INFORMATION
  Report Type: 
  Country: None (occurrence: None)
  Receive Date: 20090612
  Receipt Date: 20090529
  Transmission Date: 20091009
  Serious: Yes (Hospitalization)
  Sender: FDA-Public Use
  Company Number: 2009001620

PATIENT
  Age: 74 Year
  Sex: Female

DRUGS (10)
  1. ERLOTINIB (ERLOTINIB) (TABLET) (ERLOTINIB) [Suspect]
     Indication: LUNG ADENOCARCINOMA
     Dosage: 150 MG, QD, ORAL
     Dates: start: 20081017, end: 20090405
  2. ALTAT (ROXATIDINE ACETATE HYDROCHLORIDE) [Concomitant]
  3. PREDNISOLONE [Concomitant]
  4. LENDORM [Concomitant]
  5. BACTRIM [Concomitant]
  6. BETAMETHASONE [Concomitant]
  7. METHYCOBAL (MECOBALAMIN) [Concomitant]
  8. DOGMATYL (SULPIRIDE) [Concomitant]
  9. BONALON [Concomitant]
  10. GEMZAR [Concomitant]

REACTIONS (3)
  - ALTERED STATE OF CONSCIOUSNESS [None]
  - CONVULSION [None]
  - PYREXIA [None]
